FAERS Safety Report 17155931 (Version 2)
Quarter: 2020Q1

REPORT INFORMATION
  Report Type: Spontaneous
  Country: US (occurrence: US)
  Receive Date: 20191216
  Receipt Date: 20200102
  Transmission Date: 20200409
  Serious: No
  Sender: FDA-Public Use
  Company Number: NVSC2019US008735

PATIENT
  Sex: Male

DRUGS (1)
  1. COSENTYX [Suspect]
     Active Substance: SECUKINUMAB
     Indication: PRODUCT USED FOR UNKNOWN INDICATION
     Dosage: UNK (MONTHLY DOSE)
     Route: 065
     Dates: start: 20190928

REACTIONS (3)
  - Underdose [Unknown]
  - Device malfunction [Unknown]
  - Wrong technique in device usage process [Unknown]
